FAERS Safety Report 4612567-9 (Version None)
Quarter: 2005Q1

REPORT INFORMATION
  Report Type: 
  Country: None (occurrence: None)
  Receive Date: 20050316
  Receipt Date: 20050316
  Transmission Date: 20050727
  Serious: Yes (Other)
  Sender: FDA-Public Use
  Company Number: None

PATIENT
  Sex: Female
  Weight: 58.9676 kg

DRUGS (1)
  1. CARBAMAZEPINE [Suspect]
     Dosage: 100MG  TWO PO  TID
     Route: 048
     Dates: start: 20040918

REACTIONS (1)
  - CONVULSION [None]
